FAERS Safety Report 16857254 (Version 1)
Quarter: 2019Q3

REPORT INFORMATION
  Report Type: Other
  Country: CA (occurrence: CA)
  Receive Date: 20190926
  Receipt Date: 20190926
  Transmission Date: 20191005
  Serious: Yes (Other)
  Sender: FDA-Public Use
  Company Number: CA-COLGATE PALMOLIVE COMPANY-20190902440

PATIENT

DRUGS (31)
  1. CIMZIA [Suspect]
     Active Substance: CERTOLIZUMAB PEGOL
     Dosage: 200.0 MG
     Route: 058
  2. ZOPICLONE [Concomitant]
     Active Substance: ZOPICLONE
  3. PANTOLOC [PANTOPRAZOLE] [Concomitant]
     Active Substance: PANTOPRAZOLE SODIUM
  4. CIMZIA [Suspect]
     Active Substance: CERTOLIZUMAB PEGOL
     Indication: RHEUMATOID ARTHRITIS
     Dosage: 400.0 MG
     Route: 058
  5. HYDROXYCHLOROQUINE [HYDROXYCHLOROQUINE SULFATE] [Concomitant]
     Active Substance: HYDROXYCHLOROQUINE SULFATE
  6. CIMZIA [Suspect]
     Active Substance: CERTOLIZUMAB PEGOL
     Dosage: 400.0 MG
     Route: 058
  7. ERGOCALCIFEROL. [Concomitant]
     Active Substance: ERGOCALCIFEROL
  8. PLAQUENIL [Concomitant]
     Active Substance: HYDROXYCHLOROQUINE SULFATE
  9. PANTOPRAZOLE [Concomitant]
     Active Substance: PANTOPRAZOLE
  10. CHLORHEXIDINE UNSPECIFIED [Suspect]
     Active Substance: CHLORHEXIDINE
  11. ACTEMRA [Suspect]
     Active Substance: TOCILIZUMAB
  12. ACETAMINOPHEN. [Suspect]
     Active Substance: ACETAMINOPHEN
  13. IBUPROFEN. [Concomitant]
     Active Substance: IBUPROFEN
  14. DESOGESTREL AND ETHINYL ESTRADIOL [Concomitant]
     Active Substance: DESOGESTREL\ETHINYL ESTRADIOL
  15. VITAMIN C [Concomitant]
     Active Substance: ASCORBIC ACID
  16. OXYCODONE HYDROCHLORIDE;OXYCODONE TEREPHTHALATE;PARACETAMOL [Suspect]
     Active Substance: ACETAMINOPHEN\OXYCODONE HYDROCHLORIDE\OXYCODONE TEREPHTHALATE
  17. REACTINE [CETIRIZINE HYDROCHLORIDE] [Concomitant]
     Active Substance: CETIRIZINE HYDROCHLORIDE
  18. LEFLUNOMIDE. [Suspect]
     Active Substance: LEFLUNOMIDE
  19. SIMPONI [Suspect]
     Active Substance: GOLIMUMAB
     Route: 058
  20. PREDNISONE. [Concomitant]
     Active Substance: PREDNISONE
  21. FISH OIL [Concomitant]
     Active Substance: FISH OIL
  22. VITAMIN D3 [Concomitant]
     Active Substance: CHOLECALCIFEROL
  23. TYLENOL [Concomitant]
     Active Substance: ACETAMINOPHEN
  24. COENZYME Q10 [Concomitant]
     Active Substance: UBIDECARENONE
  25. OXYCODONE;PARACETAMOL [Suspect]
     Active Substance: ACETAMINOPHEN\OXYCODONE HYDROCHLORIDE
  26. ARAVA [Suspect]
     Active Substance: LEFLUNOMIDE
  27. ORENCIA [Suspect]
     Active Substance: ABATACEPT
  28. ENBREL [Suspect]
     Active Substance: ETANERCEPT
     Indication: RHEUMATOID ARTHRITIS
     Route: 058
  29. METHOTREXATE. [Suspect]
     Active Substance: METHOTREXATE
  30. OXYCODONE [Suspect]
     Active Substance: OXYCODONE
  31. VITAMIN D NOS [Concomitant]
     Active Substance: VITAMIN D NOS

REACTIONS (20)
  - Pain [Unknown]
  - Vomiting [Unknown]
  - Rash [Unknown]
  - Body temperature increased [Unknown]
  - Back pain [Unknown]
  - Abdominal pain upper [Unknown]
  - Diarrhoea [Unknown]
  - Ear pain [Unknown]
  - Lower respiratory tract infection [Unknown]
  - Muscle spasticity [Unknown]
  - Headache [Unknown]
  - Asthenia [Unknown]
  - Insomnia [Unknown]
  - Joint swelling [Unknown]
  - Respiratory disorder [Unknown]
  - Peripheral swelling [Unknown]
  - Sinusitis [Unknown]
  - Pruritus generalised [Unknown]
  - Urticaria [Unknown]
  - Night sweats [Unknown]
